FAERS Safety Report 4526049-6 (Version None)
Quarter: 2004Q4

REPORT INFORMATION
  Report Type: 
  Country: None (occurrence: None)
  Receive Date: 20041213
  Receipt Date: 20041213
  Transmission Date: 20050328
  Serious: Yes (Disabling, Other)
  Sender: FDA-Public Use
  Company Number: None

PATIENT
  Sex: Female
  Weight: 58.9676 kg

DRUGS (5)
  1. EFFEXOR XR [Suspect]
     Indication: DEPRESSION
     Dosage: 75 MG  ONCE DAILY ORAL
     Route: 048
     Dates: start: 20020830, end: 20041212
  2. EFFEXOR XR [Suspect]
     Indication: GENERALISED ANXIETY DISORDER
     Dosage: 75 MG  ONCE DAILY ORAL
     Route: 048
     Dates: start: 20020830, end: 20041212
  3. ORTHO TRI-CYCLEN [Concomitant]
  4. NUVARING [Concomitant]
  5. LORAZEPAM [Concomitant]

REACTIONS (7)
  - ACTIVITIES OF DAILY LIVING IMPAIRED [None]
  - DRUG WITHDRAWAL SYNDROME [None]
  - EMOTIONAL DISTRESS [None]
  - IMPAIRED WORK ABILITY [None]
  - IRRITABILITY [None]
  - MUSCLE CRAMP [None]
  - NERVOUS SYSTEM DISORDER [None]
